FAERS Safety Report 5156461-6 (Version None)
Quarter: 2006Q4

REPORT INFORMATION
  Report Type: 
  Country: None (occurrence: None)
  Receive Date: 20061113
  Receipt Date: 20061030
  Transmission Date: 20070319
  Serious: Yes (Other)
  Sender: FDA-Public Use
  Company Number: S06-USA-04274-01

PATIENT
  Age: 16 Year
  Sex: Female

DRUGS (4)
  1. CELEXA [Suspect]
     Indication: ANXIETY
     Dosage: 20 MG QD PO
     Route: 048
     Dates: start: 20021103, end: 20021101
  2. CELEXA [Suspect]
     Indication: DEPRESSION
     Dosage: 20 MG QD PO
     Route: 048
     Dates: start: 20021103, end: 20021101
  3. 5 HYDROXYTRYPTOPHAN (5HTP) [Concomitant]
  4. ATIVAN [Concomitant]

REACTIONS (18)
  - AKATHISIA [None]
  - ALCOHOL POISONING [None]
  - ANXIETY [None]
  - ARTHRALGIA [None]
  - CONCUSSION [None]
  - DEPRESSION [None]
  - DRUG ABUSER [None]
  - FALL [None]
  - HYPERVENTILATION [None]
  - INTENTIONAL SELF-INJURY [None]
  - INTERVERTEBRAL DISC PROTRUSION [None]
  - LOSS OF CONSCIOUSNESS [None]
  - PANIC ATTACK [None]
  - RESPIRATORY RATE INCREASED [None]
  - SELF INJURIOUS BEHAVIOUR [None]
  - SOMNOLENCE [None]
  - SUICIDE ATTEMPT [None]
  - WEIGHT INCREASED [None]
